FAERS Safety Report 5422677-4 (Version None)
Quarter: 2007Q3

REPORT INFORMATION
  Report Type: 
  Country: None (occurrence: None)
  Receive Date: 20070822
  Receipt Date: 20070814
  Transmission Date: 20080115
  Serious: Yes (Life-Threatening, Hospitalization, Disabling, Other)
  Sender: FDA-Public Use
  Company Number: CA-PFIZER INC-2007002275

PATIENT
  Sex: Male
  Weight: 83.9 kg

DRUGS (7)
  1. LYRICA [Suspect]
     Indication: NEURALGIA
     Route: 048
     Dates: start: 20060930, end: 20061001
  2. DURAGESIC-100 [Concomitant]
  3. ASPIRIN W/CODEINE [Concomitant]
  4. IMOVANE [Concomitant]
  5. BISOPROLOL [Concomitant]
  6. HYDROCHLOROTHIAZIDE [Concomitant]
  7. ALL OTHER THERAPEUTIC PRODUCTS [Concomitant]

REACTIONS (2)
  - BLINDNESS TRANSIENT [None]
  - TYPE 1 DIABETES MELLITUS [None]
